FAERS Safety Report 4732290-X (Version None)
Quarter: 2005Q3

REPORT INFORMATION
  Report Type: 
  Country: None (occurrence: None)
  Receive Date: 20050726
  Receipt Date: 20050228
  Transmission Date: 20060218
  Serious: Yes (Hospitalization)
  Sender: FDA-Public Use
  Company Number: 05ITY0079

PATIENT
  Age: 85 Year
  Sex: Male

DRUGS (4)
  1. AGGRASTAT [Suspect]
     Indication: ANGINA UNSTABLE
     Dosage: 5 ML/H
     Dates: start: 20050218, end: 20050219
  2. HEPARIN SODIUM (HEPARIN SODIUM) (INJECTION FOR INFUSION) [Suspect]
     Indication: ANGINA UNSTABLE
     Dosage: 20,000U/DAY; 19,200U/DAY; 15.6U/DAY
     Dates: start: 20050218, end: 20050219
  3. ASPIRIN [Suspect]
     Indication: ANGINA UNSTABLE
     Dosage: 100 MG QD
     Dates: start: 20050217, end: 20050220
  4. PLAVIX [Concomitant]

REACTIONS (1)
  - THROMBOCYTOPENIA [None]
